FAERS Safety Report 5268885-7 (Version None)
Quarter: 2007Q1

REPORT INFORMATION
  Report Type: 
  Country: None (occurrence: None)
  Receive Date: 20061212
  Receipt Date: 20040503
  Transmission Date: 20070707
  Serious: No
  Sender: FDA-Public Use
  Company Number: 2004UW08985

PATIENT
  Age: 72 Year
  Sex: Male

DRUGS (4)
  1. CASODEX [Suspect]
  2. ZOLADEX [Suspect]
  3. CALCIUM [Concomitant]
  4. VITAMIN D [Concomitant]

REACTIONS (1)
  - METASTATIC NEOPLASM [None]
